FAERS Safety Report 9266660 (Version 2)
Quarter: 2013Q3

REPORT INFORMATION
  Report Type: Report from Study
  Country: FR (occurrence: FR)
  Receive Date: 20130502
  Receipt Date: 20130813
  Transmission Date: 20140515
  Serious: Yes (Hospitalization)
  Sender: FDA-Public Use
  Company Number: FR-ASTELLAS-2013US004522

PATIENT
  Age: 17 Year
  Sex: Male

DRUGS (1)
  1. TACROLIMUS OINTMENT [Suspect]
     Indication: DERMATITIS ATOPIC
     Dosage: 0.03 %, UID/QD
     Route: 061
     Dates: start: 20021115, end: 20030619

REACTIONS (1)
  - Henoch-Schonlein purpura [Recovered/Resolved]
